FAERS Safety Report 17098241 (Version 1)
Quarter: 2019Q4

REPORT INFORMATION
  Report Type: Spontaneous
  Country: US (occurrence: US)
  Receive Date: 20191202
  Receipt Date: 20191202
  Transmission Date: 20200122
  Serious: Yes (Hospitalization)
  Sender: FDA-Public Use
  Company Number: US-PFIZER INC-2019453381

PATIENT
  Age: 82 Year
  Sex: Male

DRUGS (3)
  1. VIDAZA [Concomitant]
     Active Substance: AZACITIDINE
     Dosage: UNK
  2. PEMBROLIZUMAB. [Suspect]
     Active Substance: PEMBROLIZUMAB
     Dosage: UNK
     Dates: start: 201910
  3. INLYTA [Suspect]
     Active Substance: AXITINIB
     Indication: MYELODYSPLASTIC SYNDROME
     Dosage: 5 MG, DAILY
     Route: 048
     Dates: start: 201910

REACTIONS (8)
  - Neoplasm progression [Unknown]
  - Contusion [Unknown]
  - Pleural effusion [Unknown]
  - Dyspnoea [Unknown]
  - Product use in unapproved indication [Unknown]
  - Constipation [Unknown]
  - Abdominal pain [Unknown]
  - Off label use [Unknown]
